FAERS Safety Report 9647355 (Version 1)
Quarter: 2013Q4

REPORT INFORMATION
  Report Type: Spontaneous
  Country: US (occurrence: US)
  Receive Date: 20131027
  Receipt Date: 20131027
  Transmission Date: 20140711
  Serious: Yes (Other)
  Sender: FDA-Public Use
  Company Number: US-NAPPMUNDI-USA-2013-0107405

PATIENT
  Age: 17 Year
  Sex: Female

DRUGS (2)
  1. OXYCONTIN (NDA 22-272) [Suspect]
     Indication: DRUG ABUSE
     Route: 048
  2. XANAX [Suspect]
     Indication: DRUG ABUSE
     Route: 048

REACTIONS (2)
  - Drug abuse [Recovering/Resolving]
  - Depression [Recovering/Resolving]
